FAERS Safety Report 7281303-2 (Version None)
Quarter: 2010Q4

REPORT INFORMATION
  Report Type: 
  Country: None (occurrence: None)
  Receive Date: 20101221
  Receipt Date: 20100415
  Transmission Date: 20110411
  Serious: Yes (Other)
  Sender: FDA-Public Use
  Company Number: WAES 1004USA02440

PATIENT
  Sex: Female

DRUGS (3)
  1. JANUVIA [Suspect]
     Dosage: 100 MG/DAILY/PO
     Route: 048
  2. GLUCOPHAGE [Concomitant]
  3. METFORMIN HCL [Concomitant]

REACTIONS (2)
  - HYPOGLYCAEMIA [None]
  - PANCREATITIS [None]
